FAERS Safety Report 22917214 (Version 3)
Quarter: 2024Q1

REPORT INFORMATION
  Report Type: Report from Study
  Country: GB (occurrence: GB)
  Receive Date: 20230907
  Receipt Date: 20240213
  Transmission Date: 20240410
  Serious: Yes (Other)
  Sender: FDA-Public Use
  Company Number: GB-002147023-NVSC2023GB154474

PATIENT
  Sex: Female

DRUGS (2)
  1. KESIMPTA [Suspect]
     Active Substance: OFATUMUMAB
     Indication: Multiple sclerosis
     Dosage: 20 MG, QMO
     Route: 058
     Dates: start: 20230704
  2. KESIMPTA [Suspect]
     Active Substance: OFATUMUMAB
     Indication: Relapsing-remitting multiple sclerosis

REACTIONS (13)
  - Dysphagia [Recovering/Resolving]
  - Hypoaesthesia [Recovering/Resolving]
  - Urinary tract infection [Recovering/Resolving]
  - Chest pain [Recovering/Resolving]
  - Feeling of body temperature change [Unknown]
  - Pain [Unknown]
  - Grip strength decreased [Unknown]
  - Infection [Unknown]
  - Accidental exposure to product [Unknown]
  - Incorrect dose administered [Recovered/Resolved]
  - Chills [Unknown]
  - Headache [Unknown]
  - Oral disorder [Unknown]

NARRATIVE: CASE EVENT DATE: 20230704
